FAERS Safety Report 4488400-5 (Version None)
Quarter: 2004Q4

REPORT INFORMATION
  Report Type: 
  Country: None (occurrence: None)
  Receive Date: 20041026
  Receipt Date: 20041013
  Transmission Date: 20050328
  Serious: Yes (Other)
  Sender: FDA-Public Use
  Company Number: 2004066984

PATIENT
  Sex: Male

DRUGS (6)
  1. LIPITOR [Suspect]
     Indication: ILL-DEFINED DISORDER
     Dates: end: 20020301
  2. ACCUPRIL [Suspect]
     Indication: ILL-DEFINED DISORDER
     Dates: end: 20020801
  3. FENOFIBRATE [Suspect]
     Indication: ILL-DEFINED DISORDER
     Dates: end: 20040908
  4. ROSIGLITAZONE MALEATE [Concomitant]
  5. ISRADIPINE (ISRADIPIINE) [Concomitant]
  6. ISOSORBIDE MONONITRATE [Concomitant]

REACTIONS (9)
  - BLOOD CREATINE PHOSPHOKINASE INCREASED [None]
  - CARDIAC DISORDER [None]
  - DIFFICULTY IN WALKING [None]
  - GLYCOSYLATED HAEMOGLOBIN INCREASED [None]
  - MOVEMENT DISORDER [None]
  - MUSCLE DISORDER [None]
  - MUSCLE INJURY [None]
  - RENAL FAILURE [None]
  - RESPIRATORY DISORDER [None]
